FAERS Safety Report 5475883-7 (Version None)
Quarter: 2007Q4

REPORT INFORMATION
  Report Type: 
  Country: None (occurrence: None)
  Receive Date: 20071003
  Receipt Date: 20070928
  Transmission Date: 20080405
  Serious: Yes (Hospitalization)
  Sender: FDA-Public Use
  Company Number: HU-BRISTOL-MYERS SQUIBB COMPANY-13883681

PATIENT
  Age: 49 Year
  Sex: Male
  Weight: 55 kg

DRUGS (8)
  1. CISPLATIN [Suspect]
     Indication: NEOPLASM MALIGNANT
     Route: 065
     Dates: start: 20070619, end: 20070731
  2. BLINDED: PEMETREXED DISODIUM [Suspect]
     Indication: NEOPLASM MALIGNANT
     Route: 042
     Dates: start: 20070619, end: 20070731
  3. FOLIC ACID [Concomitant]
     Dates: start: 20070611
  4. MEDROL [Concomitant]
     Dates: start: 20070730, end: 20070801
  5. DEXTROSE [Concomitant]
     Route: 042
     Dates: start: 20070730
  6. INTRALIPID 10% [Concomitant]
     Dates: start: 20070802
  7. POTASSIUM CHLORIDE [Concomitant]
     Route: 042
     Dates: start: 20070730
  8. VITAMIN B-12 [Concomitant]
     Dates: start: 20070611, end: 20070611

REACTIONS (2)
  - HAEMOGLOBIN DECREASED [None]
  - TRISMUS [None]
